FAERS Safety Report 4570342-8 (Version None)
Quarter: 2005Q1

REPORT INFORMATION
  Report Type: 
  Country: None (occurrence: None)
  Receive Date: 20050204
  Receipt Date: 20041229
  Transmission Date: 20050727
  Serious: Yes (Hospitalization)
  Sender: FDA-Public Use
  Company Number: PR-ROCHE-391402

PATIENT
  Age: 80 Year
  Sex: Female
  Weight: 55 kg

DRUGS (9)
  1. CAPECITABINE [Suspect]
     Indication: COLORECTAL CANCER
     Dosage: ACTUAL DOSE WAS 1600 MG.  GIVEN FROM DAYS ONE TO FOURTEEN OF A THREE WEEK CYCLE.
     Route: 048
     Dates: start: 20041115, end: 20050105
  2. OXALIPLATIN [Suspect]
     Indication: COLORECTAL CANCER
     Dosage: ACTUAL DOSE 216 MG.
     Route: 042
     Dates: start: 20041115, end: 20050105
  3. GLYBURIDE [Concomitant]
     Route: 048
     Dates: start: 20030807
  4. ZIAC [Concomitant]
     Route: 048
     Dates: start: 20020615
  5. FERROUS SULFATE TAB [Concomitant]
     Route: 048
     Dates: start: 20040615
  6. MULTI-VITAMIN [Concomitant]
     Route: 048
     Dates: start: 20040615
  7. LANSOPRAZOL [Concomitant]
     Route: 048
     Dates: start: 20041111
  8. PROTEIN SUPPLEMENT [Concomitant]
     Dates: start: 20041229, end: 20050114
  9. MEGESTROL [Concomitant]
     Dates: start: 20041229, end: 20041230

REACTIONS (13)
  - ASTHENIA [None]
  - BLOOD CHLORIDE DECREASED [None]
  - BLOOD SODIUM DECREASED [None]
  - BLOOD UREA INCREASED [None]
  - BODY TEMPERATURE DECREASED [None]
  - DEHYDRATION [None]
  - DIARRHOEA INFECTIOUS [None]
  - FAECES DISCOLOURED [None]
  - FATIGUE [None]
  - GASTROINTESTINAL TOXICITY [None]
  - HYPOKALAEMIA [None]
  - PANCREATITIS ACUTE [None]
  - WHITE BLOOD CELLS STOOL POSITIVE [None]
